FAERS Safety Report 8764263 (Version 1)
Quarter: 2012Q4

REPORT INFORMATION
  Report Type: 
  Country: US (occurrence: US)
  Receive Date: 20120831
  Receipt Date: 20120831
  Transmission Date: 20130627
  Serious: Yes (Hospitalization, Disabling, Other)
  Sender: FDA-Public Use
  Company Number: US-009507513-1107USA03609

PATIENT

DRUGS (3)
  1. FOSAMAX [Suspect]
     Indication: OSTEOPOROSIS
     Dosage: 10 mg, UNK
     Route: 048
     Dates: start: 1995, end: 201010
  2. FOSAMAX [Suspect]
     Indication: OSTEOPENIA
     Dosage: 70 mg, QW
     Route: 048
     Dates: end: 201010
  3. NEUROTIN (ACETYLCARNITINE HYDROCHLORIDE) [Concomitant]
     Indication: CONVULSION
     Dosage: UNK mg, UNK
     Dates: start: 1980

REACTIONS (78)
  - Renal failure chronic [Unknown]
  - Osteonecrosis of jaw [Not Recovered/Not Resolved]
  - Diabetes mellitus inadequate control [Unknown]
  - Tooth disorder [Unknown]
  - Tooth disorder [Unknown]
  - Oral infection [Unknown]
  - Exostosis of jaw [Unknown]
  - Impaired healing [Unknown]
  - Gingival bleeding [Not Recovered/Not Resolved]
  - Fistula discharge [Unknown]
  - Gingival disorder [Unknown]
  - Gastrooesophageal reflux disease [Unknown]
  - Seasonal allergy [Unknown]
  - Arthropathy [Unknown]
  - Arthropathy [Unknown]
  - Cerebral disorder [Unknown]
  - Breast mass [Unknown]
  - Pain in extremity [Unknown]
  - Contusion [Recovered/Resolved]
  - Vaginal haemorrhage [Unknown]
  - Polyp [Unknown]
  - Foot deformity [Unknown]
  - Periodontitis [Not Recovered/Not Resolved]
  - Pain in extremity [Unknown]
  - Dizziness [Unknown]
  - Viral infection [Unknown]
  - Large intestine polyp [Unknown]
  - Fall [Unknown]
  - Hypoglycaemia [Unknown]
  - Loss of consciousness [Unknown]
  - Rib fracture [Unknown]
  - Herpes zoster [Recovering/Resolving]
  - Cerebral arteriosclerosis [Unknown]
  - Polyneuropathy [Unknown]
  - Contusion [Unknown]
  - Pollakiuria [Unknown]
  - Joint stiffness [Unknown]
  - Diabetes mellitus inadequate control [Unknown]
  - Hypertensive nephropathy [Unknown]
  - Irritable bowel syndrome [Unknown]
  - Accident [Unknown]
  - Wrist fracture [Unknown]
  - Ankle fracture [Unknown]
  - Ankle fracture [Unknown]
  - Hyperlipidaemia [Unknown]
  - Hyperthyroidism [Unknown]
  - Dementia [Unknown]
  - Pulpitis dental [Unknown]
  - Bone loss [Unknown]
  - Bone density decreased [Unknown]
  - Tooth disorder [Unknown]
  - Jaw disorder [Unknown]
  - Tooth disorder [Unknown]
  - Tooth disorder [Unknown]
  - Tooth disorder [Unknown]
  - Tooth disorder [Unknown]
  - Inflammation [Unknown]
  - Toothache [Unknown]
  - Toothache [Unknown]
  - Irritable bowel syndrome [Unknown]
  - Insulin-requiring type 2 diabetes mellitus [Unknown]
  - Anxiety [Unknown]
  - Tooth abscess [Unknown]
  - Exostosis [Unknown]
  - Bronchitis [Unknown]
  - Sinus disorder [Unknown]
  - Increased tendency to bruise [Unknown]
  - Sensitivity of teeth [Unknown]
  - Dental caries [Unknown]
  - Tooth abscess [Unknown]
  - Confusional state [Unknown]
  - Memory impairment [Unknown]
  - Tooth abscess [Unknown]
  - Periodontal disease [Unknown]
  - Tooth fracture [Unknown]
  - Retinal exudates [Unknown]
  - Cataract [Unknown]
  - Diabetic retinopathy [Unknown]
